FAERS Safety Report 5096933-6 (Version None)
Quarter: 2006Q3

REPORT INFORMATION
  Report Type: 
  Country: None (occurrence: None)
  Receive Date: 20060831
  Receipt Date: 20060831
  Transmission Date: 20061208
  Serious: No
  Sender: FDA-Public Use
  Company Number: None

PATIENT
  Age: 38 Year
  Sex: Female
  Weight: 64.4108 kg

DRUGS (1)
  1. LEXAPRO [Suspect]
     Indication: ANXIETY
     Dosage: ONE 5-MG TAB PER DAY ONCE DAILY PO
     Route: 048
     Dates: start: 20060515, end: 20060831

REACTIONS (1)
  - AMNESIA [None]
